FAERS Safety Report 9974665 (Version 1)
Quarter: 2014Q1

REPORT INFORMATION
  Report Type: Report from Study
  Country: US (occurrence: US)
  Receive Date: 20140306
  Receipt Date: 20140306
  Transmission Date: 20141002
  Serious: No
  Sender: FDA-Public Use
  Company Number: US-ABBVIE-13P-163-1159387-00

PATIENT
  Age: 82 Year
  Sex: Female

DRUGS (8)
  1. HUMIRA [Suspect]
     Indication: PSORIASIS
     Dates: start: 201309
  2. CODEINE [Concomitant]
     Indication: PAIN
     Dosage: AT BEDTIME
  3. TEMAZEPAM [Concomitant]
     Indication: INSOMNIA
     Dosage: AT BEDTIME
  4. PREDNISONE [Concomitant]
     Indication: PSORIASIS
  5. LEVOTHYROXINE [Concomitant]
     Indication: THYROID DISORDER
  6. FUROSEMIDE [Concomitant]
     Indication: LOCAL SWELLING
     Dosage: AS NEEDED FOR WHEN FEET SWELL
  7. ANTIBIOTICS [Concomitant]
  8. PREDNISONE [Concomitant]

REACTIONS (2)
  - Incision site vesicles [Not Recovered/Not Resolved]
  - Dyspepsia [Not Recovered/Not Resolved]
